FAERS Safety Report 9866428 (Version 1)
Quarter: 2014Q1

REPORT INFORMATION
  Report Type: Spontaneous
  Country: US (occurrence: US)
  Receive Date: 20140204
  Receipt Date: 20140204
  Transmission Date: 20141002
  Serious: Yes (Death)
  Sender: FDA-Public Use
  Company Number: US-AMGEN-USASP2014006428

PATIENT
  Age: 92 Year
  Sex: Male

DRUGS (2)
  1. XGEVA [Suspect]
     Indication: NEOPLASM PROSTATE
     Dosage: 120 MG, Q4WK
     Route: 065
  2. XGEVA [Suspect]
     Indication: BONE NEOPLASM

REACTIONS (1)
  - Death [Fatal]
